FAERS Safety Report 15146284 (Version 1)
Quarter: 2018Q3

REPORT INFORMATION
  Report Type: Spontaneous
  Country: AU (occurrence: AU)
  Receive Date: 20180715
  Receipt Date: 20180715
  Transmission Date: 20181010
  Serious: Yes (Other)
  Sender: FDA-Public Use
  Company Number: AU-TEVA-2018-AU-923952

PATIENT
  Sex: Male

DRUGS (1)
  1. IMATINIB [Suspect]
     Active Substance: IMATINIB
     Route: 065

REACTIONS (4)
  - Malignant neoplasm progression [Unknown]
  - Graft versus host disease in lung [Unknown]
  - Acute myeloid leukaemia [Unknown]
  - Graft versus host disease in skin [Unknown]
